FAERS Safety Report 4446048-2 (Version None)
Quarter: 2004Q3

REPORT INFORMATION
  Report Type: 
  Country: None (occurrence: None)
  Receive Date: 20040910
  Receipt Date: 20040904
  Transmission Date: 20050211
  Serious: Yes (Other)
  Sender: FDA-Public Use
  Company Number: GB-GLAXOSMITHKLINE-B0344429A

PATIENT
  Age: 84 Year
  Sex: Female

DRUGS (1)
  1. AUGMENTIN '250' [Suspect]
     Indication: PNEUMONIA
     Dosage: 1.2G PER DAY
     Route: 042
     Dates: start: 20040729, end: 20040803

REACTIONS (3)
  - BLOOD ALBUMIN INCREASED [None]
  - BLOOD BILIRUBIN INCREASED [None]
  - LIVER FUNCTION TEST ABNORMAL [None]
